FAERS Safety Report 6822743-2 (Version None)
Quarter: 2010Q3

REPORT INFORMATION
  Report Type: 
  Country: None (occurrence: None)
  Receive Date: 20100708
  Receipt Date: 20100706
  Transmission Date: 20110219
  Serious: Yes (Hospitalization, Other)
  Sender: FDA-Public Use
  Company Number: FR-ROXANE LABORATORIES, INC.-2010-RO-00794RO

PATIENT
  Age: 44 Year
  Sex: Male

DRUGS (11)
  1. MYCOPHENOLATE MOFETIL [Suspect]
     Indication: IMMUNOSUPPRESSANT DRUG THERAPY
     Dosage: 1440 MG
  2. PREDNISONE [Suspect]
     Indication: IMMUNOSUPPRESSANT DRUG THERAPY
     Dosage: 10 MG
  3. CLARITHROMYCIN [Suspect]
     Indication: ANTIBIOTIC THERAPY
  4. CLARITHROMYCIN [Suspect]
     Indication: PNEUMONIA BACTERIAL
  5. TACROLIMUS [Suspect]
     Indication: IMMUNOSUPPRESSANT DRUG THERAPY
     Dosage: 6 MG
  6. RIFABUTIN [Suspect]
     Indication: ANTIBIOTIC THERAPY
  7. RIFABUTIN [Suspect]
     Indication: PNEUMONIA BACTERIAL
  8. ETHAMBUTHOL [Suspect]
     Indication: ANTIBIOTIC THERAPY
  9. ETHAMBUTHOL [Suspect]
     Indication: PNEUMONIA BACTERIAL
  10. ISONIAZID [Suspect]
     Indication: ANTIBIOTIC THERAPY
  11. MOXIFLOXACIN [Suspect]
     Indication: PNEUMONIA BACTERIAL

REACTIONS (3)
  - DRUG INEFFECTIVE [None]
  - INTESTINAL OBSTRUCTION [None]
  - PNEUMONIA BACTERIAL [None]
